FAERS Safety Report 7338172-1 (Version None)
Quarter: 2011Q1

REPORT INFORMATION
  Report Type: 
  Country: None (occurrence: None)
  Receive Date: 20110308
  Receipt Date: 20110304
  Transmission Date: 20110831
  Serious: Yes (Death, Hospitalization)
  Sender: FDA-Public Use
  Company Number: PHHY2011JP06755

PATIENT
  Sex: Male

DRUGS (16)
  1. PREDNISOLONE [Suspect]
     Dosage: 30 MG
     Route: 048
     Dates: start: 20091208
  2. PLASMA [Concomitant]
  3. PREDNISOLONE [Suspect]
     Dosage: 25 MG, UNK
     Route: 048
     Dates: start: 20091215
  4. NICOTINAMIDE [Concomitant]
     Indication: PEMPHIGOID
     Dosage: 1000 MG
     Route: 048
     Dates: start: 20091110, end: 20100106
  5. METHYLPREDNISOLONE SODIUM SUCCINATE [Concomitant]
     Indication: PEMPHIGOID
     Dosage: 1 G/ DAY
     Route: 048
  6. MINOMYCIN [Concomitant]
     Dosage: 200 MG, UNK
     Route: 048
     Dates: start: 20091201, end: 20100106
  7. CLARITIN REDITABS [Concomitant]
     Dosage: 10 MG, UNK
     Dates: start: 20091017, end: 20100106
  8. ANTIBIOTICS [Concomitant]
  9. NEORAL [Suspect]
     Indication: PEMPHIGOID
     Dosage: 150 MG/ DAY
     Route: 048
     Dates: start: 20091118, end: 20100106
  10. VIBRAMYCIN [Concomitant]
     Dosage: 100 MG, UNK
     Route: 048
     Dates: start: 20091106, end: 20091130
  11. PREDNISOLONE [Suspect]
     Dosage: 40 MG, UNK
     Route: 048
     Dates: start: 20091113
  12. FLUMARIN [Concomitant]
  13. PREDNISOLONE [Suspect]
     Indication: PEMPHIGOID
     Dosage: 40 MG, UNK
     Route: 048
     Dates: start: 20091017
  14. VENOGLOBULIN [Concomitant]
  15. SULPERAZON [Concomitant]
  16. MINOCYCLINE HYDROCHLORIDE [Concomitant]
     Indication: PEMPHIGOID
     Dosage: 200 MG
     Route: 048

REACTIONS (14)
  - PNEUMONIA [None]
  - PNEUMONIA STAPHYLOCOCCAL [None]
  - CYTOMEGALOVIRUS INFECTION [None]
  - DEPRESSION [None]
  - APATHY [None]
  - BRONCHOPULMONARY ASPERGILLOSIS [None]
  - DECREASED APPETITE [None]
  - MALNUTRITION [None]
  - PNEUMOCYSTIS JIROVECI PNEUMONIA [None]
  - LUNG INFECTION PSEUDOMONAL [None]
  - WHITE BLOOD CELL COUNT INCREASED [None]
  - ABULIA [None]
  - C-REACTIVE PROTEIN INCREASED [None]
  - COUGH [None]
